FAERS Safety Report 18168322 (Version 2)
Quarter: 2020Q3

REPORT INFORMATION
  Report Type: Report from Study
  Country: GB (occurrence: GB)
  Receive Date: 20200819
  Receipt Date: 20200907
  Transmission Date: 20201103
  Serious: Yes (Other)
  Sender: FDA-Public Use
  Company Number: NVSC2020GB227805

PATIENT
  Sex: Male

DRUGS (1)
  1. HYRIMOZ [Suspect]
     Active Substance: ADALIMUMAB-ADAZ
     Indication: RHEUMATOID ARTHRITIS
     Dosage: UNK UNK, Q2W (40 MG/0.8 ML)
     Route: 065
     Dates: start: 20200724

REACTIONS (4)
  - Sleep apnoea syndrome [Unknown]
  - Cough [Unknown]
  - Sensation of foreign body [Unknown]
  - Dyspnoea [Unknown]
